FAERS Safety Report 9906287 (Version 3)
Quarter: 2015Q3

REPORT INFORMATION
  Report Type: Spontaneous
  Country: US (occurrence: US)
  Receive Date: 20140218
  Receipt Date: 20150811
  Transmission Date: 20151125
  Serious: No
  Sender: FDA-Public Use
  Company Number: US-GILEAD-2012-0050657

PATIENT
  Age: 65 Year
  Sex: Male
  Weight: 124.26 kg

DRUGS (14)
  1. ALBUTEROL SULFATE. [Concomitant]
     Active Substance: ALBUTEROL SULFATE
  2. DOXAZOSIN [Concomitant]
     Active Substance: DOXAZOSIN\DOXAZOSIN MESYLATE
  3. FUROSEMIDE. [Concomitant]
     Active Substance: FUROSEMIDE
  4. ISOSORBIDE MONONITRATE. [Concomitant]
     Active Substance: ISOSORBIDE MONONITRATE
  5. NORVASC [Concomitant]
     Active Substance: AMLODIPINE BESYLATE
  6. NOVOLOG [Concomitant]
     Active Substance: INSULIN ASPART
  7. TOPROL XL [Concomitant]
     Active Substance: METOPROLOL SUCCINATE
  8. LETAIRIS [Suspect]
     Active Substance: AMBRISENTAN
     Dosage: UNK
  9. ATACAND [Concomitant]
     Active Substance: CANDESARTAN CILEXETIL
  10. NOVOLIN N [Concomitant]
     Active Substance: INSULIN HUMAN
  11. ASPIRIN. [Concomitant]
     Active Substance: ASPIRIN
  12. MINOXIDIL. [Concomitant]
     Active Substance: MINOXIDIL
  13. LETAIRIS [Suspect]
     Active Substance: AMBRISENTAN
     Indication: PULMONARY HYPERTENSION
     Dosage: 5 MG, UNK
     Route: 048
     Dates: end: 20120203
  14. CLONIDINE. [Concomitant]
     Active Substance: CLONIDINE

REACTIONS (5)
  - Abdominal pain upper [Unknown]
  - Fluid overload [Unknown]
  - Swelling [Unknown]
  - Weight increased [Recovered/Resolved]
  - Fluid retention [Recovered/Resolved]
